FAERS Safety Report 5069267-3 (Version None)
Quarter: 2006Q3

REPORT INFORMATION
  Report Type: 
  Country: None (occurrence: None)
  Receive Date: 20060803
  Receipt Date: 20060727
  Transmission Date: 20061208
  Serious: Yes (Hospitalization, Other)
  Sender: FDA-Public Use
  Company Number: US-BAYER-200613171BCC

PATIENT
  Age: 81 Year
  Sex: Female
  Weight: 60 kg

DRUGS (3)
  1. ASPIRIN [Suspect]
     Indication: ATRIOVENTRICULAR BLOCK FIRST DEGREE
     Route: 048
  2. BAYER PM [Suspect]
     Indication: PAIN
     Route: 048
  3. BAYER BACK + BODY [Suspect]
     Indication: PAIN
     Route: 048

REACTIONS (4)
  - ANGIOPLASTY [None]
  - BLOOD DISORDER [None]
  - CHEST PAIN [None]
  - DYSPEPSIA [None]
